FAERS Safety Report 20616326 (Version 3)
Quarter: 2022Q2

REPORT INFORMATION
  Report Type: Spontaneous
  Country: IT (occurrence: IT)
  Receive Date: 20220321
  Receipt Date: 20220404
  Transmission Date: 20220721
  Serious: Yes (Hospitalization)
  Sender: FDA-Public Use
  Company Number: None

PATIENT
  Age: 61 Year
  Sex: Female

DRUGS (32)
  1. AMOXICILLIN\CLAVULANIC ACID [Suspect]
     Active Substance: AMOXICILLIN\CLAVULANIC ACID
     Indication: Enterococcal infection
     Dosage: ()
     Route: 065
  2. AMPICILLIN [Suspect]
     Active Substance: AMPICILLIN
     Indication: Clostridial infection
     Dosage: ()
     Route: 065
  3. VANCOMYCIN [Suspect]
     Active Substance: VANCOMYCIN
     Indication: Clostridial infection
     Dosage: ()
     Route: 065
  4. IMIPENEM AND CILASTATIN [Suspect]
     Active Substance: CILASTATIN SODIUM\IMIPENEM
     Indication: Escherichia infection
     Dosage: ()
     Route: 065
  5. TACROLIMUS [Suspect]
     Active Substance: TACROLIMUS
     Indication: Immunosuppressant drug therapy
     Dosage: 9 MILLIGRAM DAILY;
     Route: 065
  6. AMIKACIN [Suspect]
     Active Substance: AMIKACIN
     Indication: Clostridial infection
     Dosage: ()
     Route: 065
  7. CEFTRIAXONE [Suspect]
     Active Substance: CEFTRIAXONE
     Indication: Clostridial infection
     Dosage: ()
     Route: 065
  8. GENTAMICIN [Suspect]
     Active Substance: GENTAMICIN
     Indication: Clostridial infection
     Dosage: ()
     Route: 065
  9. LEVOFLOXACIN [Suspect]
     Active Substance: LEVOFLOXACIN
     Indication: Escherichia infection
     Dosage: ()
     Route: 065
  10. MEROPENEM [Suspect]
     Active Substance: MEROPENEM
     Indication: Enterococcal infection
     Dosage: ()
     Route: 065
  11. PIPERACILLIN AND TAZOBACTAM [Suspect]
     Active Substance: PIPERACILLIN SODIUM\TAZOBACTAM SODIUM
     Indication: Clostridial infection
     Dosage: ()
     Route: 065
  12. GENTAMICIN [Suspect]
     Active Substance: GENTAMICIN
     Indication: Enterococcal infection
  13. GENTAMICIN [Suspect]
     Active Substance: GENTAMICIN
     Indication: Escherichia infection
  14. AMOXICILLIN\CLAVULANIC ACID [Suspect]
     Active Substance: AMOXICILLIN\CLAVULANIC ACID
     Indication: Clostridial infection
  15. AMOXICILLIN\CLAVULANIC ACID [Suspect]
     Active Substance: AMOXICILLIN\CLAVULANIC ACID
     Indication: Escherichia infection
  16. IMIPENEM AND CILASTATIN [Suspect]
     Active Substance: CILASTATIN SODIUM\IMIPENEM
     Indication: Enterococcal infection
  17. IMIPENEM AND CILASTATIN [Suspect]
     Active Substance: CILASTATIN SODIUM\IMIPENEM
     Indication: Clostridial infection
  18. PIPERACILLIN AND TAZOBACTAM [Suspect]
     Active Substance: PIPERACILLIN SODIUM\TAZOBACTAM SODIUM
     Indication: Enterococcal infection
  19. PIPERACILLIN AND TAZOBACTAM [Suspect]
     Active Substance: PIPERACILLIN SODIUM\TAZOBACTAM SODIUM
     Indication: Escherichia infection
  20. CEFTRIAXONE [Suspect]
     Active Substance: CEFTRIAXONE
     Indication: Enterococcal infection
  21. CEFTRIAXONE [Suspect]
     Active Substance: CEFTRIAXONE
     Indication: Escherichia infection
  22. LEVOFLOXACIN [Suspect]
     Active Substance: LEVOFLOXACIN
     Indication: Clostridial infection
  23. LEVOFLOXACIN [Suspect]
     Active Substance: LEVOFLOXACIN
     Indication: Off label use
  24. LEVOFLOXACIN [Suspect]
     Active Substance: LEVOFLOXACIN
     Indication: Enterococcal infection
  25. VANCOMYCIN [Suspect]
     Active Substance: VANCOMYCIN
     Indication: Enterococcal infection
  26. VANCOMYCIN [Suspect]
     Active Substance: VANCOMYCIN
     Indication: Escherichia infection
  27. AMPICILLIN [Suspect]
     Active Substance: AMPICILLIN
     Indication: Escherichia infection
  28. AMPICILLIN [Suspect]
     Active Substance: AMPICILLIN
     Indication: Enterococcal infection
  29. AMIKACIN [Suspect]
     Active Substance: AMIKACIN
     Indication: Enterococcal infection
  30. AMIKACIN [Suspect]
     Active Substance: AMIKACIN
     Indication: Escherichia infection
  31. MEROPENEM [Suspect]
     Active Substance: MEROPENEM
     Indication: Escherichia infection
  32. MEROPENEM [Suspect]
     Active Substance: MEROPENEM
     Indication: Clostridial infection

REACTIONS (9)
  - Enterococcal infection [Recovered/Resolved]
  - Clostridial infection [Recovered/Resolved]
  - Immune reconstitution inflammatory syndrome [Recovered/Resolved]
  - Cholangitis [Recovered/Resolved]
  - Guillain-Barre syndrome [Recovered/Resolved]
  - Septic shock [Recovered/Resolved]
  - Escherichia infection [Recovered/Resolved]
  - Cytomegalovirus infection reactivation [Recovered/Resolved]
  - Off label use [Unknown]
